FAERS Safety Report 23868137 (Version 1)
Quarter: 2024Q2

REPORT INFORMATION
  Report Type: Spontaneous
  Country: US (occurrence: US)
  Receive Date: 20240517
  Receipt Date: 20240517
  Transmission Date: 20240716
  Serious: Yes (Other)
  Sender: FDA-Public Use
  Company Number: US-FERRINGPH-2024FE02333

PATIENT

DRUGS (3)
  1. FIRMAGON [Suspect]
     Active Substance: DEGARELIX ACETATE
     Indication: Product used for unknown indication
     Route: 065
  2. ENZALUTAMIDE [Suspect]
     Active Substance: ENZALUTAMIDE
     Indication: Product used for unknown indication
     Dosage: 160 MG
     Route: 065
     Dates: start: 20210623
  3. ENZALUTAMIDE [Suspect]
     Active Substance: ENZALUTAMIDE
     Dosage: 80 MG
     Route: 065

REACTIONS (6)
  - Dyspnoea [Unknown]
  - Sneezing [Unknown]
  - Muscle spasms [Unknown]
  - Fatigue [Unknown]
  - Hyperhidrosis [Unknown]
  - Chills [Unknown]
